FAERS Safety Report 17687614 (Version 2)
Quarter: 2020Q2

REPORT INFORMATION
  Report Type: Spontaneous
  Country: US (occurrence: US)
  Receive Date: 20200421
  Receipt Date: 20200527
  Transmission Date: 20200714
  Serious: No
  Sender: FDA-Public Use
  Company Number: US-GLAXOSMITHKLINE-US2020065392

PATIENT
  Age: 70 Year
  Sex: Male

DRUGS (1)
  1. EQUATE NICOTINE [Suspect]
     Active Substance: NICOTINE
     Indication: SMOKING CESSATION THERAPY
     Dosage: 1 PATCH, ONCE IN DAY
     Dates: start: 20200410, end: 20200420

REACTIONS (3)
  - Application site urticaria [Recovered/Resolved]
  - Application site vesicles [Recovered/Resolved]
  - Application site reaction [Recovered/Resolved]

NARRATIVE: CASE EVENT DATE: 20200411
